FAERS Safety Report 6185960-3 (Version None)
Quarter: 2009Q2

REPORT INFORMATION
  Report Type: 
  Country: None (occurrence: None)
  Receive Date: 20090511
  Receipt Date: 20090504
  Transmission Date: 20091009
  Serious: Yes (Other)
  Sender: FDA-Public Use
  Company Number: US-ELI_LILLY_AND_COMPANY-US200905000412

PATIENT
  Sex: Male

DRUGS (12)
  1. HUMALOG MIX 75/25 [Suspect]
  2. COMTAN [Concomitant]
     Dosage: 200 MG, UNK
  3. CARBIDOPA AND LEVODOPA [Concomitant]
     Dosage: UNK, 4/D
  4. GABAPENTIN [Concomitant]
     Dosage: 300 MG, 2/D
  5. FUROSEMIDE [Concomitant]
     Dosage: 40 MG, DAILY (1/D)
  6. ENALAPRIL MALEATE [Concomitant]
     Dosage: 20 MG, 2/D
  7. COREG [Concomitant]
     Dosage: 12.5 MG, 2/D
  8. DILTIAZEM [Concomitant]
     Dosage: 180 MG, DAILY (1/D)
  9. SIMVASTATIN [Concomitant]
     Dosage: 40 MG, DAILY (1/D)
  10. COUMADIN [Concomitant]
     Dosage: 4 MG, DAILY (1/D)
  11. DETROL LA [Concomitant]
     Dosage: 4 MG, DAILY (1/D)
  12. FLOMAX [Concomitant]
     Dosage: 0.4 MG, DAILY (1/D)

REACTIONS (3)
  - CARDIAC PACEMAKER INSERTION [None]
  - MUSCULOSKELETAL DISORDER [None]
  - PARKINSON'S DISEASE [None]
